FAERS Safety Report 25787358 (Version 3)
Quarter: 2025Q3

REPORT INFORMATION
  Report Type: Spontaneous
  Country: MY (occurrence: MY)
  Receive Date: 20250910
  Receipt Date: 20250930
  Transmission Date: 20251020
  Serious: Yes (Disabling, Other)
  Sender: BRISTOL-MYERS SQUIBB COMPANY
  Company Number: MY-BRISTOL-MYERS SQUIBB COMPANY-2025-123704

PATIENT
  Age: 68 Year
  Sex: Male

DRUGS (4)
  1. MAVACAMTEN [Suspect]
     Active Substance: MAVACAMTEN
     Indication: Hypertrophic cardiomyopathy
     Dates: start: 20250704, end: 20250731
  2. MAVACAMTEN [Suspect]
     Active Substance: MAVACAMTEN
  3. ELIQUIS [Concomitant]
     Active Substance: APIXABAN
     Indication: Atrial fibrillation
     Dates: start: 20250711
  4. MICARDIS [Concomitant]
     Active Substance: TELMISARTAN
     Indication: Hypertension

REACTIONS (2)
  - Tunnel vision [Recovered/Resolved]
  - Neovascular age-related macular degeneration [Not Recovered/Not Resolved]

NARRATIVE: CASE EVENT DATE: 20250704
